FAERS Safety Report 14325725 (Version 1)
Quarter: 2017Q4

REPORT INFORMATION
  Report Type: Spontaneous
  Country: DE (occurrence: DE)
  Receive Date: 20171226
  Receipt Date: 20171226
  Transmission Date: 20180321
  Serious: Yes (Hospitalization)
  Sender: FDA-Public Use
  Company Number: PHHY2017DE192965

PATIENT
  Age: 43 Year
  Sex: Female

DRUGS (2)
  1. ALEMTUZUMAB [Suspect]
     Active Substance: ALEMTUZUMAB
     Indication: MULTIPLE SCLEROSIS
     Dosage: 12 MG, UNK
     Route: 041
  2. METHYLPREDNISOLONE. [Suspect]
     Active Substance: METHYLPREDNISOLONE
     Indication: PRODUCT USED FOR UNKNOWN INDICATION
     Dosage: 1 G, UNK
     Route: 065

REACTIONS (8)
  - Headache [Recovered/Resolved]
  - Pyrexia [Recovered/Resolved]
  - White blood cell count abnormal [Recovered/Resolved]
  - Pleocytosis [Recovered/Resolved]
  - Meningism [Recovered/Resolved]
  - Listeriosis [Recovered/Resolved]
  - C-reactive protein increased [Recovered/Resolved]
  - Rash [Recovered/Resolved]
